FAERS Safety Report 9310207 (Version 2)
Quarter: 2014Q3

REPORT INFORMATION
  Report Type: Spontaneous
  Country: TR (occurrence: TR)
  Receive Date: 20130527
  Receipt Date: 20140916
  Transmission Date: 20150326
  Serious: Yes (Other)
  Sender: FDA-Public Use
  Company Number: TR-RANBAXY-2013R1-69300

PATIENT
  Age: 19 Year
  Sex: Male

DRUGS (1)
  1. ROACCUTANE [Suspect]
     Active Substance: ISOTRETINOIN
     Indication: ACNE
     Dosage: 1 MG/KG, DAILY
     Route: 048

REACTIONS (2)
  - Autoimmune thyroiditis [Recovering/Resolving]
  - Myasthenia gravis [Recovering/Resolving]
